FAERS Safety Report 6680925-7 (Version None)
Quarter: 2010Q2

REPORT INFORMATION
  Report Type: 
  Country: None (occurrence: None)
  Receive Date: 20100414
  Receipt Date: 20100412
  Transmission Date: 20101027
  Serious: Yes (Other)
  Sender: FDA-Public Use
  Company Number: GB-ASTRAZENECA-2010SE15891

PATIENT
  Sex: Female

DRUGS (2)
  1. QUETIAPINE [Suspect]
     Route: 048
  2. NITROFURANTOIN [Interacting]
     Route: 048

REACTIONS (3)
  - AGITATION [None]
  - DEPRESSION [None]
  - DRUG INTERACTION [None]
